FAERS Safety Report 13332550 (Version 1)
Quarter: 2017Q1

REPORT INFORMATION
  Report Type: Spontaneous
  Country: FR (occurrence: FR)
  Receive Date: 20170313
  Receipt Date: 20170313
  Transmission Date: 20170428
  Serious: Yes (Hospitalization)
  Sender: FDA-Public Use
  Company Number: PHHY2017FR033007

PATIENT
  Age: 77 Year
  Sex: Female

DRUGS (17)
  1. LAMPRENE [Suspect]
     Active Substance: CLOFAZIMINE
     Dosage: 100 MG, QD
     Route: 048
     Dates: start: 201608
  2. ANSATIPINE [Suspect]
     Active Substance: RIFABUTIN
     Dosage: 150 MG, QD
     Route: 048
     Dates: start: 20160719, end: 20160722
  3. RIFAMPICINE [Concomitant]
     Active Substance: RIFAMPIN
     Indication: PRODUCT USED FOR UNKNOWN INDICATION
     Dosage: 600 MG, QD
     Route: 065
     Dates: start: 20160903
  4. LAMPRENE [Suspect]
     Active Substance: CLOFAZIMINE
     Dosage: 100 MG, QD
     Route: 048
     Dates: start: 20160719, end: 20160722
  5. AMIKACINE [Suspect]
     Active Substance: AMIKACIN
     Dosage: 530 MG, QD
     Route: 042
     Dates: start: 20160817
  6. ANSATIPINE [Suspect]
     Active Substance: RIFABUTIN
     Indication: PRODUCT USED FOR UNKNOWN INDICATION
     Dosage: UNK
     Route: 048
     Dates: start: 20160611, end: 20160709
  7. AMIKACINE [Suspect]
     Active Substance: AMIKACIN
     Dosage: 530 MG, QD
     Route: 042
     Dates: start: 20160815
  8. AZITHROMYCIN ANHYDROUS. [Concomitant]
     Active Substance: AZITHROMYCIN ANHYDROUS
     Indication: PRODUCT USED FOR UNKNOWN INDICATION
     Dosage: UNK
     Route: 065
     Dates: start: 20160611, end: 20160709
  9. AZITHROMYCIN ANHYDROUS. [Concomitant]
     Active Substance: AZITHROMYCIN ANHYDROUS
     Dosage: 250 MG, BID
     Route: 065
  10. LAMPRENE [Suspect]
     Active Substance: CLOFAZIMINE
     Dosage: 100 MG, QD
     Route: 048
     Dates: start: 20160729
  11. AMIKACINE [Suspect]
     Active Substance: AMIKACIN
     Dosage: 530 MG, UNK (DAILY, 3 TIMES PER WEEK)
     Route: 042
     Dates: start: 20160719, end: 20160722
  12. AMIKACINE [Suspect]
     Active Substance: AMIKACIN
     Dosage: 530 MG, QD
     Route: 042
     Dates: start: 20160819
  13. ZECLAR [Concomitant]
     Active Substance: CLARITHROMYCIN
     Dosage: 500 MG, BID
     Route: 065
     Dates: start: 20160822
  14. AMIKACINE [Suspect]
     Active Substance: AMIKACIN
     Indication: PRODUCT USED FOR UNKNOWN INDICATION
     Dosage: UNK
     Route: 042
     Dates: start: 20160611, end: 20160707
  15. DOLIPRANE [Concomitant]
     Active Substance: ACETAMINOPHEN
     Indication: PRODUCT USED FOR UNKNOWN INDICATION
     Dosage: UNK
     Route: 065
  16. LAMPRENE [Suspect]
     Active Substance: CLOFAZIMINE
     Indication: PRODUCT USED FOR UNKNOWN INDICATION
     Dosage: UNK
     Route: 048
     Dates: start: 20160611, end: 20160709
  17. ZECLAR [Concomitant]
     Active Substance: CLARITHROMYCIN
     Indication: PRODUCT USED FOR UNKNOWN INDICATION
     Dosage: 500 MG, QD
     Route: 065
     Dates: start: 20160815

REACTIONS (1)
  - Hepatocellular injury [Recovered/Resolved]

NARRATIVE: CASE EVENT DATE: 20160722
